FAERS Safety Report 17673105 (Version 4)
Quarter: 2020Q2

REPORT INFORMATION
  Report Type: Report from Study
  Country: CA (occurrence: CA)
  Receive Date: 20200416
  Receipt Date: 20200522
  Transmission Date: 20200713
  Serious: Yes (Death, Hospitalization)
  Sender: FDA-Public Use
  Company Number: CA-TAIHO ONCOLOGY  INC-EU-2020-01267

PATIENT
  Age: 61 Year
  Sex: Female

DRUGS (4)
  1. TAS-102 [Suspect]
     Active Substance: TIPIRACIL HYDROCHLORIDE\TRIFLURIDINE
     Indication: CHOLANGIOCARCINOMA
     Dosage: CYCLE 1
     Route: 048
     Dates: start: 20200309, end: 20200320
  2. HYDROMORPHONE CR [Concomitant]
     Route: 048
     Dates: start: 20200313
  3. APIXABAN [Concomitant]
     Active Substance: APIXABAN
     Route: 048
     Dates: start: 20200320
  4. HYDROMORPHONE [Concomitant]
     Active Substance: HYDROMORPHONE
     Route: 048
     Dates: start: 20200210

REACTIONS (4)
  - Fall [Unknown]
  - Lethargy [Unknown]
  - Memory impairment [Unknown]
  - Disease progression [Fatal]

NARRATIVE: CASE EVENT DATE: 20200328
